FAERS Safety Report 26094449 (Version 2)
Quarter: 2025Q4

REPORT INFORMATION
  Report Type: Spontaneous
  Country: US (occurrence: US)
  Receive Date: 20251126
  Receipt Date: 20251231
  Transmission Date: 20260117
  Serious: No
  Sender: PFIZER
  Company Number: US-PFIZER INC-202500231641

PATIENT
  Age: 10 Year
  Sex: Male

DRUGS (2)
  1. NGENLA [Suspect]
     Active Substance: SOMATROGON-GHLA
     Indication: Growth hormone deficiency
     Dosage: 17 MG, WEEKLY (Q 7 DAYS AS A SINGLE INJECTION, WHICH EQUALS 0.43 MG/KG/WK)
     Route: 058
     Dates: end: 20250821
  2. NGENLA [Suspect]
     Active Substance: SOMATROGON-GHLA
     Dosage: 22 MG, WEEKLY(EQUALS 0.56 MG/KG/WK, Q 7 DAYS)
     Route: 058
     Dates: start: 20250831

REACTIONS (1)
  - Thyroxine increased [Unknown]
